FAERS Safety Report 23343050 (Version 1)
Quarter: 2023Q4

REPORT INFORMATION
  Report Type: Spontaneous
  Country: MX (occurrence: MX)
  Receive Date: 20231227
  Receipt Date: 20231227
  Transmission Date: 20240110
  Serious: Yes (Other)
  Sender: FDA-Public Use
  Company Number: MX-Merck Healthcare KGaA-2023493842

PATIENT
  Age: 46 Year
  Sex: Male

DRUGS (1)
  1. LEVOTHYROXINE SODIUM [Suspect]
     Active Substance: LEVOTHYROXINE SODIUM
     Indication: Hypothyroidism
     Dosage: MANUFACTURE DATE: 08-NOV-2022?EXPIRY DATE (BATCH: M25492): 01-OCT-2023
     Route: 048
     Dates: start: 20231028

REACTIONS (9)
  - Blindness [Unknown]
  - General physical health deterioration [Unknown]
  - Vision blurred [Unknown]
  - Feeling of despair [Unknown]
  - Pain [Unknown]
  - Feeling cold [Unknown]
  - Asthenia [Unknown]
  - Fatigue [Unknown]
  - Suspected counterfeit product [Unknown]

NARRATIVE: CASE EVENT DATE: 20231103
